FAERS Safety Report 8803078 (Version 1)
Quarter: 2012Q4

REPORT INFORMATION
  Report Type: 
  Country: US (occurrence: US)
  Receive Date: 20120924
  Receipt Date: 20120924
  Transmission Date: 20130627
  Serious: No
  Sender: FDA-Public Use
  Company Number: US-TEVA-360497USA

PATIENT
  Age: 35 Year
  Sex: Female
  Weight: 64.47 kg

DRUGS (2)
  1. PLAN B ONE-STEP [Suspect]
     Indication: POST COITAL CONTRACEPTION
     Dosage: 1.5 Milligram Daily;
     Route: 048
     Dates: start: 20120907, end: 20120907
  2. ALLEGRA [Concomitant]
     Indication: SEASONAL ALLERGY

REACTIONS (3)
  - Pollakiuria [Not Recovered/Not Resolved]
  - Menstruation irregular [Recovered/Resolved]
  - Abdominal discomfort [Not Recovered/Not Resolved]
